FAERS Safety Report 21385062 (Version 3)
Quarter: 2022Q4

REPORT INFORMATION
  Report Type: Spontaneous
  Country: DE (occurrence: DE)
  Receive Date: 20220928
  Receipt Date: 20221027
  Transmission Date: 20230113
  Serious: Yes (Hospitalization)
  Sender: FDA-Public Use
  Company Number: None

PATIENT
  Age: 88 Year
  Sex: Male
  Weight: 70 kg

DRUGS (13)
  1. DALTEPARIN SODIUM [Suspect]
     Active Substance: DALTEPARIN SODIUM
     Dosage: 5000 IU, 1X/DAY (0-0-1-0)
     Route: 058
  2. DONEPEZIL HYDROCHLORIDE [Suspect]
     Active Substance: DONEPEZIL HYDROCHLORIDE
     Dosage: 10 MG, 1X/DAY, 0-0-1-0
     Route: 048
  3. ESCITALOPRAM [Suspect]
     Active Substance: ESCITALOPRAM OXALATE
     Dosage: 5 MG, 1X/DAY, 1-0-0-0
     Route: 065
  4. ASPIRIN [Suspect]
     Active Substance: ASPIRIN
     Dosage: 100 MG, 1X/DAY, 0-1-0-0
     Route: 065
  5. MIRTAZAPINE [Concomitant]
     Active Substance: MIRTAZAPINE
     Dosage: 15 MG, 1X/DAY (0-0-0-1)
     Route: 065
  6. SIMVASTATIN [Concomitant]
     Active Substance: SIMVASTATIN
     Dosage: 40 MG,1X/DAY (0-0-1-0)
     Route: 065
  7. RAMIPRIL [Concomitant]
     Active Substance: RAMIPRIL
     Dosage: 5 MG, 1X/DAY (1-0-0-0)
     Route: 065
  8. POLYETHYLENE GLYCOLS [Concomitant]
     Active Substance: POLYETHYLENE GLYCOLS
     Dosage: DOSE AND FREQUENCY UNKNOWN
     Route: 065
  9. MACROGOL/POTASSIUM CHLORIDE/SODIUM CARBONATE ANHYDROUS/SODIUM CHLORIDE [Concomitant]
     Dosage: SCHEME
  10. ALLOPURINOL [Concomitant]
     Active Substance: ALLOPURINOL
     Dosage: 300 MG,1X/DAY (1-0-0-0)
     Route: 065
  11. FENTANYL [Concomitant]
     Active Substance: FENTANYL
     Dosage: 12 UG, SCHEME
     Route: 062
  12. METAMIZOL [Concomitant]
     Active Substance: METAMIZOLE SODIUM
     Dosage: 500 MG, 4X/DAY  (6 HR), 1-1-1-1
     Route: 065
  13. MELPERONE [Concomitant]
     Active Substance: MELPERONE
     Dosage: 5 ML, 3X/DAY, (8 HR), (1-1-1-0)
     Route: 065

REACTIONS (10)
  - Systemic infection [Unknown]
  - Hypotension [Unknown]
  - Dementia [Unknown]
  - Anaemia [Unknown]
  - Renal impairment [Unknown]
  - General physical health deterioration [Unknown]
  - Haematemesis [Unknown]
  - Confusional state [Unknown]
  - Blood glucose increased [Unknown]
  - Gamma-glutamyltransferase increased [Unknown]

NARRATIVE: CASE EVENT DATE: 20211024
